FAERS Safety Report 16048042 (Version 1)
Quarter: 2019Q1

REPORT INFORMATION
  Report Type: Report from Study
  Country: IT (occurrence: IT)
  Receive Date: 20190307
  Receipt Date: 20190307
  Transmission Date: 20190418
  Serious: Yes (Hospitalization)
  Sender: FDA-Public Use
  Company Number: IT-PFIZER INC-2019099870

PATIENT
  Age: 11 Year
  Sex: Female
  Weight: 60 kg

DRUGS (8)
  1. ANTRA [OMEPRAZOLE] [Concomitant]
     Active Substance: OMEPRAZOLE
     Indication: PREMEDICATION
     Dosage: 40 MG, UNK
     Route: 048
  2. BACTRIM [Concomitant]
     Active Substance: SULFAMETHOXAZOLE\TRIMETHOPRIM
     Dosage: 2 DF, UNK
     Route: 048
  3. MYCOSTATIN [Concomitant]
     Active Substance: NYSTATIN
     Indication: PREMEDICATION
     Dosage: 15 ML, UNK
     Route: 048
  4. PERFALGAN [Concomitant]
     Active Substance: ACETAMINOPHEN
     Indication: PAIN IN EXTREMITY
     Dosage: 900 MG, UNK
     Route: 042
  5. LASIX [Concomitant]
     Active Substance: FUROSEMIDE
     Indication: ANAESTHETIC PREMEDICATION
     Dosage: 30 MG, UNK
  6. METHOTREXATE SODIUM. [Suspect]
     Active Substance: METHOTREXATE SODIUM
     Indication: ACUTE LYMPHOCYTIC LEUKAEMIA
     Dosage: 12 MG, CYCLIC
     Route: 042
     Dates: start: 20180910, end: 20180924
  7. METHOTREXATE SODIUM. [Suspect]
     Active Substance: METHOTREXATE SODIUM
     Dosage: UNK
  8. URBASON [METHYLPREDNISOLONE] [Concomitant]
     Active Substance: METHYLPREDNISOLONE
     Dosage: 10 MG, UNK
     Route: 042
     Dates: start: 20180910, end: 20180924

REACTIONS (2)
  - Erythropenia [Recovering/Resolving]
  - Pyrexia [Recovering/Resolving]

NARRATIVE: CASE EVENT DATE: 20180915
